FAERS Safety Report 18264377 (Version 1)
Quarter: 2020Q3

REPORT INFORMATION
  Report Type: Spontaneous
  Country: DE (occurrence: DE)
  Receive Date: 20200914
  Receipt Date: 20200914
  Transmission Date: 20201103
  Serious: Yes (Hospitalization)
  Sender: FDA-Public Use
  Company Number: DE-MYLANLABS-2020M1078209

PATIENT
  Age: 85 Year
  Sex: Female

DRUGS (9)
  1. ALENDRONSAEURE [Concomitant]
     Active Substance: ALENDRONATE SODIUM
     Dosage: ANWENDUNG SEIT L?NGEREM
  2. CLOPIDOGREL [Suspect]
     Active Substance: CLOPIDOGREL BISULFATE
     Indication: PRODUCT USED FOR UNKNOWN INDICATION
     Dosage: ANWENDUNG SEIT L?NGEREM
  3. SERTRALINE [Interacting]
     Active Substance: SERTRALINE HYDROCHLORIDE
     Dosage: 50 MILLIGRAM, QD
     Dates: start: 20200308, end: 20200309
  4. VITAMIN D3 [Concomitant]
     Active Substance: CHOLECALCIFEROL
     Dosage: ANWENDUNG SEIT L?NGEREM
  5. L?THYROXIN                         /00068002/ [Concomitant]
     Active Substance: LEVOTHYROXINE SODIUM
     Dosage: ANWENDUNG SEIT L?NGEREM
  6. CALCIUM [Concomitant]
     Active Substance: CALCIUM
     Dosage: ANWENDUNG SEIT L?NGEREM
  7. SERTRALINE [Interacting]
     Active Substance: SERTRALINE HYDROCHLORIDE
     Dosage: 25 MILLIGRAM, QD
     Dates: start: 20200310
  8. SERTRALINE [Interacting]
     Active Substance: SERTRALINE HYDROCHLORIDE
     Indication: PRODUCT USED FOR UNKNOWN INDICATION
     Dosage: 25 MILLIGRAM, QD
     Dates: start: 20200304, end: 20200307
  9. METOPROLOL. [Concomitant]
     Active Substance: METOPROLOL
     Dosage: ANWENDUNG SEIT L?NGEREM

REACTIONS (5)
  - Vomiting [Recovered/Resolved]
  - Dizziness [Recovered/Resolved]
  - Nausea [Recovered/Resolved]
  - Drug interaction [Unknown]
  - Fall [Recovered/Resolved]

NARRATIVE: CASE EVENT DATE: 202003
